FAERS Safety Report 9049324 (Version 1)
Quarter: 2013Q1

REPORT INFORMATION
  Report Type: Spontaneous
  Country: US (occurrence: US)
  Receive Date: 20130205
  Receipt Date: 20130205
  Transmission Date: 20140127
  Serious: Yes (Other)
  Sender: FDA-Public Use
  Company Number: US-ASTELLAS-2013US001267

PATIENT
  Sex: Female

DRUGS (1)
  1. ADENOSCAN [Suspect]
     Indication: SCAN MYOCARDIAL PERFUSION
     Dosage: UNK
     Route: 042
     Dates: start: 20121219, end: 20121219

REACTIONS (5)
  - Muscle tightness [Not Recovered/Not Resolved]
  - Balance disorder [Unknown]
  - Sensation of heaviness [Unknown]
  - Asthenia [Unknown]
  - Asthenia [None]
